FAERS Safety Report 8841421 (Version 1)
Quarter: 2012Q4

REPORT INFORMATION
  Report Type: 
  Country: BR (occurrence: BR)
  Receive Date: 20121015
  Receipt Date: 20121015
  Transmission Date: 20130627
  Serious: Yes (Other)
  Sender: FDA-Public Use
  Company Number: PHHY2012BR089948

PATIENT
  Sex: Female
  Weight: 81 kg

DRUGS (11)
  1. DIOVAN [Suspect]
     Indication: HYPERTENSION
     Dosage: 2 DF, daily
     Route: 048
     Dates: start: 201206
  2. HUMALOG [Concomitant]
     Indication: BLOOD GLUCOSE ABNORMAL
  3. LANTUS [Concomitant]
     Indication: BLOOD GLUCOSE ABNORMAL
     Dosage: 27 IU, in the morning
  4. MOTILIUM [Concomitant]
     Indication: GASTRIC DISORDER
     Dosage: 3 DF, daily
     Route: 048
     Dates: start: 201205
  5. MOTILIUM [Concomitant]
     Indication: GASTRIC HYPOMOTILITY
  6. LASIX [Concomitant]
     Indication: DIURETIC THERAPY
     Dosage: 1 DF (half tablet in the morning and half tablet in the night)
     Route: 048
  7. VEROTINA [Concomitant]
     Indication: DEPRESSION
     Dosage: 2 DF, daily
     Route: 048
     Dates: start: 201205
  8. RIVOTRIL [Concomitant]
     Indication: INSOMNIA
     Dosage: 1 DF (in the night)
     Route: 048
     Dates: start: 201205
  9. RIVOTRIL [Concomitant]
     Indication: DEPRESSION
  10. FLORINEF [Concomitant]
     Indication: HYPERTENSION
     Dosage: 4 DF, daily
     Route: 048
  11. FLORINEF [Concomitant]
     Dosage: 1 DF, daily
     Route: 048

REACTIONS (3)
  - Cataract [Unknown]
  - Fluid retention [Unknown]
  - Oedema peripheral [Unknown]
